FAERS Safety Report 20165949 (Version 1)
Quarter: 2021Q4

REPORT INFORMATION
  Report Type: Spontaneous
  Country: FR (occurrence: FR)
  Receive Date: 20211209
  Receipt Date: 20211209
  Transmission Date: 20220303
  Serious: Yes (Life-Threatening, Hospitalization, Other)
  Sender: FDA-Public Use
  Company Number: None

PATIENT
  Age: 39 Year
  Sex: Female
  Weight: 70 kg

DRUGS (3)
  1. COMIRNATY [Suspect]
     Active Substance: TOZINAMERAN
     Indication: COVID-19 immunisation
     Dosage: DOSE 2, SINGLE
     Route: 030
     Dates: start: 20210913, end: 20210913
  2. ETHINYL ESTRADIOL\LEVONORGESTREL [Suspect]
     Active Substance: ETHINYL ESTRADIOL\LEVONORGESTREL
     Dosage: 1 DF, 1X/DAY, LONG TERM
     Route: 048
     Dates: end: 20211019
  3. TEGRETOL [Suspect]
     Active Substance: CARBAMAZEPINE
     Indication: Trigeminal neuralgia
     Dosage: 200 MG, 1X/DAY
     Route: 048
     Dates: start: 20211005, end: 20211010

REACTIONS (15)
  - Cerebral venous thrombosis [Recovering/Resolving]
  - Pulmonary embolism [Unknown]
  - Cerebral haematoma [Unknown]
  - Embolism [Unknown]
  - Headache [Unknown]
  - Iron deficiency anaemia [Recovering/Resolving]
  - Trigeminal neuralgia [Unknown]
  - Sinusitis [Unknown]
  - Swelling face [Unknown]
  - Venous occlusion [Unknown]
  - Hyperhomocysteinaemia [Unknown]
  - Dysarthria [Unknown]
  - Speech disorder [Unknown]
  - Gait disturbance [Unknown]
  - Inappropriate schedule of product administration [Unknown]

NARRATIVE: CASE EVENT DATE: 20210601
